FAERS Safety Report 14899053 (Version 4)
Quarter: 2018Q3

REPORT INFORMATION
  Report Type: Spontaneous
  Country: US (occurrence: US)
  Receive Date: 20180516
  Receipt Date: 20180702
  Transmission Date: 20181010
  Serious: No
  Sender: FDA-Public Use
  Company Number: US-LUPIN PHARMACEUTICALS INC.-2018-02827

PATIENT
  Age: 19 Year
  Sex: Male
  Weight: 63.49 kg

DRUGS (1)
  1. MOXIFLOXACIN OPHTHALMIC SOLUTION [Suspect]
     Active Substance: MOXIFLOXACIN
     Indication: EYE INFECTION
     Dosage: 1 DROP, BID
     Route: 065
     Dates: start: 20180316, end: 20180320

REACTIONS (2)
  - Rash [Recovering/Resolving]
  - Ocular hyperaemia [Recovering/Resolving]

NARRATIVE: CASE EVENT DATE: 20180318
